FAERS Safety Report 6014130-4 (Version None)
Quarter: 2008Q4

REPORT INFORMATION
  Report Type: 
  Country: None (occurrence: None)
  Receive Date: 20081219
  Receipt Date: 20080103
  Transmission Date: 20090506
  Serious: No
  Sender: FDA-Public Use
  Company Number: A0701206A

PATIENT
  Age: 69 Year
  Sex: Male

DRUGS (2)
  1. AVODART [Suspect]
     Indication: MICTURITION DISORDER
     Dosage: .5MG PER DAY
     Route: 048
     Dates: end: 20070801
  2. AMILORIDE HYDROCHLORIDE [Concomitant]

REACTIONS (3)
  - PAINFUL ERECTION [None]
  - PENILE SIZE REDUCED [None]
  - PENIS DISORDER [None]
